FAERS Safety Report 23570652 (Version 1)
Quarter: 2024Q1

REPORT INFORMATION
  Report Type: Spontaneous
  Country: HR (occurrence: HR)
  Receive Date: 20240227
  Receipt Date: 20240227
  Transmission Date: 20240410
  Serious: Yes (Death)
  Sender: FDA-Public Use
  Company Number: None

PATIENT
  Age: 69 Year
  Sex: Female

DRUGS (6)
  1. CLOZAPINE [Suspect]
     Active Substance: CLOZAPINE
     Indication: Delusional disorder, unspecified type
     Dosage: 100 MILLIGRAM, QD (25+25+100 MG)
     Route: 048
  2. CLOZAPINE [Suspect]
     Active Substance: CLOZAPINE
     Dosage: 25 MILLIGRAM, BID (25+25+100 MG)
     Route: 048
  3. PALIPERIDONE PALMITATE [Suspect]
     Active Substance: PALIPERIDONE PALMITATE
     Indication: Delusional disorder, unspecified type
     Dosage: 100 MILLIGRAM, Q28D
     Route: 030
  4. FLUPHENAZINE [Suspect]
     Active Substance: FLUPHENAZINE
     Indication: Delusional disorder, unspecified type
     Dosage: 5 MILLIGRAM, 0.33 DAY
     Route: 048
  5. RIVOTRIL [Suspect]
     Active Substance: CLONAZEPAM
     Indication: Delusional disorder, unspecified type
     Dosage: 2 MILLIGRAM, PRN
     Route: 048
  6. ABILIFY MAINTENA [Suspect]
     Active Substance: ARIPIPRAZOLE
     Indication: Delusional disorder, unspecified type
     Dosage: 400 MILLIGRAM, Q28D
     Route: 030

REACTIONS (1)
  - Pulmonary embolism [Fatal]

NARRATIVE: CASE EVENT DATE: 20240202
